FAERS Safety Report 9491374 (Version 1)
Quarter: 2013Q3

REPORT INFORMATION
  Report Type: Spontaneous
  Country: FR (occurrence: None)
  Receive Date: 20130827
  Receipt Date: 20130827
  Transmission Date: 20140515
  Serious: Yes (Death)
  Sender: FDA-Public Use
  Company Number: DSM-2013-00758

PATIENT
  Age: 78 Year
  Sex: Female

DRUGS (15)
  1. OLMETEC [Suspect]
     Indication: PRODUCT USED FOR UNKNOWN INDICATION
     Dosage: 10 MG (10MG, 1 IN 1 D), ORAL
     Route: 048
  2. IXPRIM [Suspect]
     Indication: PRODUCT USED FOR UNKNOWN INDICATION
     Dosage: 37.5/325 MG (1 DOSAGE FORMS, 3 IN 1 D), ORAL
     Route: 048
     Dates: start: 20120111
  3. MIANSERINE [Suspect]
     Indication: PRODUCT USED FOR UNKNOWN INDICATION
     Dosage: 10 MG (10 MG, 1 IN 1 D), ORAL
     Route: 048
     Dates: start: 20121205
  4. TEMESTA [Suspect]
     Indication: PRODUCT USED FOR UNKNOWN INDICATION
     Dosage: 1 MG (1 MG, 1 IN 1 D), ORAL
     Route: 048
     Dates: start: 2010
  5. VASTAREL [Suspect]
     Indication: PRODUCT USED FOR UNKNOWN INDICATION
     Route: 048
  6. CARTEOL [Suspect]
     Indication: PRODUCT USED FOR UNKNOWN INDICATION
     Dosage: (1 IN 1 D, OPHTHALMIC
     Route: 047
  7. ACTONEL [Suspect]
     Indication: PRODUCT USED FOR UNKNOWN INDICATION
     Dosage: 35 MG (35 MG, 1 IN 1 D) ORAL
     Route: 048
  8. TOPALGIC LP [Suspect]
     Indication: PRODUCT USED FOR UNKNOWN INDICATION
     Dosage: (2 IN 1 D), ORAL
     Route: 048
  9. CORTANCYL [Suspect]
     Indication: PRODUCT USED FOR UNKNOWN INDICATION
     Dates: start: 20110125
  10. XALATAN (LATANOPROST) (0.005 PERCENT, EYE DROPS) (LATANOPROST) [Concomitant]
  11. ARTELAC (HYPROMELLOSE) (EYE DROPS) (HYPROMELLOSE) [Concomitant]
  12. CACIT VITAMINE D3 (COLECALCIFEROL, CALCIUM CARBONATE) (LOZENGE) (COLECALCIFEROL, CACIUM CARBONATE) [Concomitant]
  13. DOLIPRANE (PARACETAMOL) (500 MILLIGRAM, TABLET) (PARACETAMOL) [Concomitant]
  14. PROCTOLOG (RUSCOGENIN, TRIMEBUTINE) (SUPPOSITORY) (RUSCOGENIN, TRIMEBUTINE) [Concomitant]
  15. DIFFU K (POTASSIUM CHLORIDE) (CAPSULE) (POTASSIUM CHLORIDE) [Concomitant]

REACTIONS (4)
  - Completed suicide [None]
  - Asphyxia [None]
  - Depression [None]
  - Glaucoma [None]
